FAERS Safety Report 9234780 (Version 2)
Quarter: 2013Q3

REPORT INFORMATION
  Report Type: Spontaneous
  Country: ES (occurrence: ES)
  Receive Date: 20130416
  Receipt Date: 20130820
  Transmission Date: 20140515
  Serious: Yes (Death, Hospitalization)
  Sender: FDA-Public Use
  Company Number: ES-CELGENEUS-144-21880-13022348

PATIENT
  Age: 77 Year
  Sex: Male

DRUGS (4)
  1. REVLIMID [Suspect]
     Indication: PLASMA CELL MYELOMA
     Route: 048
     Dates: start: 20120418, end: 201205
  2. REVLIMID [Suspect]
     Dosage: 15-10 MG
     Route: 048
     Dates: end: 201208
  3. THALIDOMIDE [Suspect]
     Indication: PLASMA CELL MYELOMA
     Route: 048
  4. DEXAMETHASONE [Concomitant]
     Indication: PLASMA CELL MYELOMA
     Route: 065
     Dates: end: 201208

REACTIONS (7)
  - Chronic obstructive pulmonary disease [Fatal]
  - Febrile neutropenia [Unknown]
  - Pneumonia [Unknown]
  - Pneumonia [Unknown]
  - Febrile neutropenia [Unknown]
  - Plasma cell myeloma [Unknown]
  - No therapeutic response [Unknown]
